FAERS Safety Report 20527197 (Version 2)
Quarter: 2022Q1

REPORT INFORMATION
  Report Type: Spontaneous
  Country: AR (occurrence: AR)
  Receive Date: 20220228
  Receipt Date: 20220314
  Transmission Date: 20220423
  Serious: Yes (Death, Other)
  Sender: FDA-Public Use
  Company Number: AR-SA-SAC20220225000761

PATIENT
  Sex: Male

DRUGS (1)
  1. DUPILUMAB [Suspect]
     Active Substance: DUPILUMAB
     Indication: Dermatitis atopic
     Dosage: UNK
     Route: 058

REACTIONS (4)
  - Cardiac failure [Fatal]
  - Pulmonary oedema [Fatal]
  - Renal failure [Fatal]
  - Cardio-respiratory arrest [Fatal]
